FAERS Safety Report 13990470 (Version 1)
Quarter: 2017Q3

REPORT INFORMATION
  Report Type: Spontaneous
  Country: US (occurrence: US)
  Receive Date: 20170920
  Receipt Date: 20170920
  Transmission Date: 20171128
  Serious: Yes (Other)
  Sender: FDA-Public Use
  Company Number: US-BRISTOL-MYERS SQUIBB COMPANY-BMS-2017-082931

PATIENT
  Sex: Male

DRUGS (1)
  1. OPDIVO [Suspect]
     Active Substance: NIVOLUMAB
     Indication: NON-SMALL CELL LUNG CANCER
     Route: 042

REACTIONS (7)
  - Hot flush [Unknown]
  - Malignant neoplasm progression [Unknown]
  - Fatigue [Unknown]
  - Back pain [Unknown]
  - Hyperhidrosis [Unknown]
  - Drug ineffective [Unknown]
  - Rheumatoid arthritis [Unknown]
